FAERS Safety Report 7518480-1 (Version None)
Quarter: 2011Q2

REPORT INFORMATION
  Report Type: 
  Country: None (occurrence: None)
  Receive Date: 20110601
  Receipt Date: 20110601
  Transmission Date: 20111010
  Serious: No
  Sender: FDA-Public Use
  Company Number: None

PATIENT
  Age: 46 Year
  Sex: Male
  Weight: 91.6266 kg

DRUGS (1)
  1. CREST PRO HEALTH RINSE [Suspect]

REACTIONS (1)
  - AGEUSIA [None]
